FAERS Safety Report 10234911 (Version 1)
Quarter: 2014Q1

REPORT INFORMATION
  Report Type: Spontaneous
  Country: US (occurrence: None)
  Receive Date: 20140306
  Receipt Date: 20140306
  Transmission Date: 20141002
  Serious: Yes (Other)
  Sender: FDA-Public Use
  Company Number: 163-21880-13051819

PATIENT
  Age: 82 Year
  Sex: Male

DRUGS (8)
  1. REVLIMID (LENALIDOMIDE) (10 MILLIGRAM, CAPSULES) [Suspect]
     Indication: PLASMA CELL MYELOMA
     Route: 048
     Dates: start: 20070208
  2. ALDACTONE (SPIRONOLACTONE) [Concomitant]
  3. ASPIRIN (ACETYLSALICYLIC ACID) [Concomitant]
  4. MAGNESIUM (MAGNESIUM) [Concomitant]
  5. NORVASC (AMLODIPINE BESILATE) [Concomitant]
  6. OMEPRAZOLE (OMEPRAZOLE) [Concomitant]
  7. OS-CAL (OS-CAL) [Concomitant]
  8. PLAVIX (CLOPIDOGREL SULFATE) [Concomitant]

REACTIONS (1)
  - Transient ischaemic attack [None]
